FAERS Safety Report 12549777 (Version 1)
Quarter: 2016Q3

REPORT INFORMATION
  Report Type: Spontaneous
  Country: JP (occurrence: JP)
  Receive Date: 20160712
  Receipt Date: 20160712
  Transmission Date: 20161109
  Serious: Yes (Other)
  Sender: FDA-Public Use
  Company Number: JP-JNJFOC-20160707407

PATIENT
  Age: 55 Year
  Sex: Male

DRUGS (4)
  1. DUROTEP MT [Suspect]
     Active Substance: FENTANYL
     Indication: PAIN
     Dosage: 2.1 MG (12.5 UG/HR)
     Route: 062
  2. DULOXETINE HYDROCHLORIDE. [Suspect]
     Active Substance: DULOXETINE HYDROCHLORIDE
     Indication: PAIN
     Route: 048
  3. TRAMCET [Concomitant]
     Active Substance: ACETAMINOPHEN\TRAMADOL
     Indication: PAIN
     Route: 048
  4. IFENPRODIL TARTRATE [Suspect]
     Active Substance: IFENPRODIL TARTRATE
     Indication: DIZZINESS
     Route: 048

REACTIONS (1)
  - Serotonin syndrome [Recovering/Resolving]
